FAERS Safety Report 9818986 (Version 1)
Quarter: 2014Q1

REPORT INFORMATION
  Report Type: Spontaneous
  Country: US (occurrence: US)
  Receive Date: 20140115
  Receipt Date: 20140115
  Transmission Date: 20141002
  Serious: No
  Sender: FDA-Public Use
  Company Number: US-ENDO PHARMACEUTICALS INC.-ENDC20130005

PATIENT
  Age: 44 Year
  Sex: Male
  Weight: 83.99 kg

DRUGS (2)
  1. ENDOCET 5MG/325MG [Suspect]
     Indication: PROCEDURAL PAIN
     Dosage: 40/2600 MG
     Route: 048
     Dates: start: 20130125, end: 20130128
  2. GLIMEPIRIDE [Concomitant]
     Indication: PRODUCT USED FOR UNKNOWN INDICATION
     Dosage: UNK
     Route: 048

REACTIONS (2)
  - Pruritus [Recovering/Resolving]
  - Urticaria [Recovering/Resolving]
